FAERS Safety Report 7995632-8 (Version None)
Quarter: 2011Q4

REPORT INFORMATION
  Report Type: 
  Country: None (occurrence: None)
  Receive Date: 20111220
  Receipt Date: 20111215
  Transmission Date: 20120403
  Serious: Yes (Other)
  Sender: FDA-Public Use
  Company Number: US-PFIZER INC-2011290324

PATIENT
  Sex: Female
  Weight: 63 kg

DRUGS (8)
  1. PREMARIN [Suspect]
     Indication: MENOPAUSE
     Dosage: 0.15 MG, 1X/DAY
  2. PREMARIN [Suspect]
     Indication: DEPRESSION
  3. PREMARIN [Suspect]
     Indication: FATIGUE
     Dosage: 0.3 MG TABS (1/4 - 1/2 TAB DAILY)
  4. PREMARIN [Suspect]
     Indication: OFF LABEL USE
     Dosage: 0.625 MG, 1X/DAY
     Route: 048
     Dates: start: 19950101
  5. PREMARIN [Suspect]
     Indication: APHASIA
  6. PREMARIN [Suspect]
     Indication: DISTURBANCE IN ATTENTION
  7. PROGEST [Concomitant]
  8. PREMARIN [Suspect]
     Indication: MOOD SWINGS

REACTIONS (5)
  - BREAST CANCER [None]
  - HERPES ZOSTER [None]
  - PARAESTHESIA [None]
  - PRURITUS [None]
  - CONSTIPATION [None]
